FAERS Safety Report 8447715-6 (Version None)
Quarter: 2012Q2

REPORT INFORMATION
  Report Type: 
  Country: None (occurrence: None)
  Receive Date: 20120612
  Receipt Date: 20120529
  Transmission Date: 20120825
  Serious: Yes (Hospitalization, Other)
  Sender: FDA-Public Use
  Company Number: DSU-2011-05550

PATIENT
  Sex: Female
  Weight: 68.03 kg

DRUGS (23)
  1. XANAX [Suspect]
     Indication: PRODUCT USED FOR UNKNOWN INDICATION
     Dosage: (1/2 TABLET QD)
  2. MACROBID [Suspect]
     Indication: PRODUCT USED FOR UNKNOWN INDICATION
  3. DIOVAN [Suspect]
     Indication: PRODUCT USED FOR UNKNOWN INDICATION
  4. LIDOCAINE [Suspect]
     Indication: ANAESTHESIA
     Dates: start: 20100513, end: 20100513
  5. LEVOTHYROXINE SODIUM [Concomitant]
  6. LOSARTAN POTASSIUM [Suspect]
     Indication: PRODUCT USED FOR UNKNOWN INDICATION
  7. CARDIZEM [Suspect]
     Indication: PRODUCT USED FOR UNKNOWN INDICATION
  8. REGLAN [Suspect]
     Indication: PRODUCT USED FOR UNKNOWN INDICATION
  9. TOPROL (METOPROLOL SUCCINATE) (METOPROLOL SUCCINATE) [Concomitant]
  10. FUROSEMIDE [Suspect]
     Indication: PRODUCT USED FOR UNKNOWN INDICATION
  11. BENICAR [Suspect]
     Indication: HYPERTENSION
     Dosage: PER ORAL
     Route: 048
     Dates: start: 20070101
  12. BACTRIM [Suspect]
     Indication: PRODUCT USED FOR UNKNOWN INDICATION
  13. HYDROCHLOROTHIAZIDE [Suspect]
     Indication: PRODUCT USED FOR UNKNOWN INDICATION
  14. BYSTOLIC [Suspect]
     Indication: PRODUCT USED FOR UNKNOWN INDICATION
  15. AVAPRO [Suspect]
     Indication: HYPERTENSION
  16. CLONIDINE [Concomitant]
  17. NORVASC [Suspect]
     Indication: HYPERTENSION
     Dosage: 2.5 MG (2.5 MG, QD), ORAL 5 MG (5 MG, QD), ORAL 10 MG, (5 MG, BID), ORAL
     Route: 048
     Dates: start: 19940101
  18. NORVASC [Suspect]
     Indication: HYPERTENSION
     Dosage: 2.5 MG (2.5 MG, QD), ORAL 5 MG (5 MG, QD), ORAL 10 MG, (5 MG, BID), ORAL
     Route: 048
     Dates: start: 19970101
  19. NORVASC [Suspect]
     Indication: HYPERTENSION
     Dosage: 2.5 MG (2.5 MG, QD), ORAL 5 MG (5 MG, QD), ORAL 10 MG, (5 MG, BID), ORAL
     Route: 048
     Dates: start: 20100101
  20. LISINOPRIL [Suspect]
     Indication: PRODUCT USED FOR UNKNOWN INDICATION
  21. LEVAQUIN [Suspect]
     Indication: PRODUCT USED FOR UNKNOWN INDICATION
  22. ATACAND [Suspect]
     Indication: RENAL DISORDER
     Dosage: 32 MG (32 MG)
     Dates: start: 19950101
  23. CIPROFLOXACIN [Suspect]
     Indication: PRODUCT USED FOR UNKNOWN INDICATION

REACTIONS (17)
  - INGROWING NAIL [None]
  - INSOMNIA [None]
  - TOE OPERATION [None]
  - CYSTITIS [None]
  - BLOOD COUNT ABNORMAL [None]
  - WEIGHT DECREASED [None]
  - BLOOD PRESSURE INCREASED [None]
  - ABDOMINAL DISTENSION [None]
  - PALPITATIONS [None]
  - LOSS OF CONSCIOUSNESS [None]
  - DIZZINESS [None]
  - ERYTHEMA [None]
  - HEADACHE [None]
  - MYOCARDIAL CALCIFICATION [None]
  - DRUG INTERACTION [None]
  - BURNING SENSATION [None]
  - CHOLECYSTECTOMY [None]
